FAERS Safety Report 5793888-3 (Version None)
Quarter: 2008Q2

REPORT INFORMATION
  Report Type: 
  Country: None (occurrence: None)
  Receive Date: 20080627
  Receipt Date: 20080618
  Transmission Date: 20081010
  Serious: Yes (Hospitalization)
  Sender: FDA-Public Use
  Company Number: NL-BOEHRINGER INGELHEIM GMBH, GERMANY-2008-BP-09883YA

PATIENT
  Sex: Male
  Weight: 74 kg

DRUGS (3)
  1. TAMSULOSIN HCL [Suspect]
     Indication: BENIGN PROSTATIC HYPERPLASIA
     Route: 048
     Dates: start: 20080502
  2. TAMBOCOR [Concomitant]
  3. IRBESARTAN [Concomitant]

REACTIONS (1)
  - ATRIAL FIBRILLATION [None]
